FAERS Safety Report 13969013 (Version 5)
Quarter: 2019Q2

REPORT INFORMATION
  Report Type: Spontaneous
  Country: US (occurrence: US)
  Receive Date: 20170914
  Receipt Date: 20190426
  Transmission Date: 20190711
  Serious: Yes (Other)
  Sender: FDA-Public Use
  Company Number: US-BEH-2017083545

PATIENT
  Age: 27 Year
  Sex: Female
  Weight: 80 kg

DRUGS (2)
  1. HAEGARDA [Suspect]
     Active Substance: HUMAN C1-ESTERASE INHIBITOR
     Indication: HEREDITARY ANGIOEDEMA
     Dosage: 4800 IU, BIW (EVERY 3-4 DAYS)
     Route: 058
     Dates: start: 20170906
  2. HAEGARDA [Suspect]
     Active Substance: HUMAN C1-ESTERASE INHIBITOR
     Dosage: UNK
     Route: 065
     Dates: start: 20170910, end: 20170910

REACTIONS (7)
  - Influenza like illness [Recovering/Resolving]
  - Bone pain [Unknown]
  - Hereditary angioedema [Unknown]
  - Influenza like illness [Recovering/Resolving]
  - Fatigue [Unknown]
  - Headache [Unknown]
  - Pain [Recovering/Resolving]

NARRATIVE: CASE EVENT DATE: 20170906
